FAERS Safety Report 5764957-9 (Version None)
Quarter: 2008Q2

REPORT INFORMATION
  Report Type: 
  Country: None (occurrence: None)
  Receive Date: 20080611
  Receipt Date: 20080530
  Transmission Date: 20081010
  Serious: Yes (Life-Threatening, Hospitalization)
  Sender: FDA-Public Use
  Company Number: B0523414A

PATIENT
  Age: 40 Year
  Sex: Male

DRUGS (1)
  1. AUGMENTIN '125' [Suspect]
     Indication: BRONCHITIS
     Dosage: 1TAB TWICE PER DAY
     Route: 048
     Dates: start: 20080529, end: 20080529

REACTIONS (4)
  - ANAPHYLACTIC SHOCK [None]
  - CARDIO-RESPIRATORY ARREST [None]
  - EYE DISORDER [None]
  - FALL [None]
